FAERS Safety Report 15550594 (Version 2)
Quarter: 2018Q4

REPORT INFORMATION
  Report Type: Spontaneous
  Country: NL (occurrence: NL)
  Receive Date: 20181025
  Receipt Date: 20181103
  Transmission Date: 20190205
  Serious: Yes (Other)
  Sender: FDA-Public Use
  Company Number: NL-SUN PHARMACEUTICAL INDUSTRIES LTD-2018RR-189130

PATIENT
  Age: 17 Year
  Sex: Female
  Weight: 74 kg

DRUGS (1)
  1. CLARITHROMYCIN. [Suspect]
     Active Substance: CLARITHROMYCIN
     Indication: WOUND INFECTION
     Dosage: 1 PER DAG
     Route: 050
     Dates: start: 20180911, end: 20180918

REACTIONS (4)
  - Headache [Recovered/Resolved]
  - Abdominal pain [Recovered/Resolved]
  - Hallucination [Recovered/Resolved]
  - Hunger [Recovered/Resolved]

NARRATIVE: CASE EVENT DATE: 20180915
